FAERS Safety Report 25165710 (Version 1)
Quarter: 2025Q2

REPORT INFORMATION
  Report Type: Spontaneous
  Country: US (occurrence: US)
  Receive Date: 20250407
  Receipt Date: 20250407
  Transmission Date: 20250716
  Serious: Yes (Death, Other)
  Sender: DR REDDYS
  Company Number: US-DRL-USA-USA/2025/04/005082

PATIENT
  Age: 39 Year
  Sex: Male

DRUGS (8)
  1. DOXORUBICIN [Suspect]
     Active Substance: DOXORUBICIN
     Indication: Haemophagocytic lymphohistiocytosis
  2. DOXORUBICIN [Suspect]
     Active Substance: DOXORUBICIN
     Indication: Polyserositis
  3. RITUXIMAB [Suspect]
     Active Substance: RITUXIMAB
     Indication: Haemophagocytic lymphohistiocytosis
  4. RITUXIMAB [Suspect]
     Active Substance: RITUXIMAB
     Indication: Polyserositis
  5. VINBLASTINE [Suspect]
     Active Substance: VINBLASTINE
     Indication: Haemophagocytic lymphohistiocytosis
  6. VINBLASTINE [Suspect]
     Active Substance: VINBLASTINE
     Indication: Polyserositis
  7. DACARBAZINE [Suspect]
     Active Substance: DACARBAZINE
     Indication: Haemophagocytic lymphohistiocytosis
  8. DACARBAZINE [Suspect]
     Active Substance: DACARBAZINE
     Indication: Polyserositis

REACTIONS (2)
  - Multiple organ dysfunction syndrome [Fatal]
  - Drug ineffective for unapproved indication [Fatal]
